FAERS Safety Report 22212625 (Version 2)
Quarter: 2023Q2

REPORT INFORMATION
  Report Type: Spontaneous
  Country: US (occurrence: None)
  Receive Date: 20230414
  Receipt Date: 20230606
  Transmission Date: 20230722
  Serious: Yes (Other)
  Sender: FDA-Public Use
  Company Number: 2023A083794

PATIENT
  Sex: Female

DRUGS (1)
  1. SAPHNELO [Suspect]
     Active Substance: ANIFROLUMAB-FNIA
     Indication: Systemic lupus erythematosus
     Route: 042

REACTIONS (15)
  - Hepatitis B [Unknown]
  - Sinusitis [Unknown]
  - Headache [Unknown]
  - Nausea [Unknown]
  - Diabetes mellitus inadequate control [Unknown]
  - Fatigue [Unknown]
  - Blood glucose increased [Unknown]
  - Oesophageal disorder [Unknown]
  - Inflammation [Unknown]
  - Red blood cell count increased [Unknown]
  - Depression [Unknown]
  - Upper respiratory tract infection [Unknown]
  - Influenza like illness [Unknown]
  - Multiple use of single-use product [Unknown]
  - Drug ineffective [Unknown]
